FAERS Safety Report 17353145 (Version 3)
Quarter: 2020Q3

REPORT INFORMATION
  Report Type: Report from Study
  Country: US (occurrence: US)
  Receive Date: 20200131
  Receipt Date: 20200710
  Transmission Date: 20201102
  Serious: Yes (Other)
  Sender: FDA-Public Use
  Company Number: NVSC2020US025243

PATIENT
  Age: 66 Year
  Sex: Male
  Weight: 52.2 kg

DRUGS (8)
  1. SERTRALINE [Concomitant]
     Active Substance: SERTRALINE HYDROCHLORIDE
     Indication: DEPRESSION
     Dosage: 100 MG, QD
     Route: 048
     Dates: start: 20160209
  2. LAMPRENE [Suspect]
     Active Substance: CLOFAZIMINE
     Indication: CORONARY ARTERY DISEASE
     Dosage: UNK MG, QD
     Route: 065
     Dates: start: 20180814
  3. LAMPRENE [Suspect]
     Active Substance: CLOFAZIMINE
     Dosage: 81 MG, QD
     Route: 048
     Dates: start: 20200221
  4. ASPIRIN. [Concomitant]
     Active Substance: ASPIRIN
     Indication: CORONARY ARTERY DISEASE
     Dosage: 81 MG, QD
     Route: 065
     Dates: start: 20200221
  5. AZITHROMYCIN ANHYDROUS. [Concomitant]
     Active Substance: AZITHROMYCIN ANHYDROUS
     Indication: MYCOBACTERIUM AVIUM COMPLEX INFECTION
     Dosage: 250 MG, QD
     Route: 048
     Dates: start: 20180314
  6. ALBUTEROL. [Concomitant]
     Active Substance: ALBUTEROL
     Indication: COUGH
     Dosage: 90 UG, Q6H
     Route: 055
     Dates: start: 20180814
  7. ATORVASTATIN [Concomitant]
     Active Substance: ATORVASTATIN
     Indication: CORONARY ARTERY DISEASE
     Dosage: 20 MG, QD
     Route: 048
     Dates: start: 20200221
  8. ETHAMBUTOL [Concomitant]
     Active Substance: ETHAMBUTOL HYDROCHLORIDE
     Indication: MYCOBACTERIUM AVIUM COMPLEX INFECTION
     Dosage: 800 MG, QD
     Route: 048
     Dates: start: 20160219

REACTIONS (2)
  - Pain in extremity [Not Recovered/Not Resolved]
  - Myocardial bridging [Unknown]

NARRATIVE: CASE EVENT DATE: 20200116
